FAERS Safety Report 25277745 (Version 1)
Quarter: 2025Q2

REPORT INFORMATION
  Report Type: Spontaneous
  Country: RO (occurrence: RO)
  Receive Date: 20250507
  Receipt Date: 20250507
  Transmission Date: 20250717
  Serious: Yes (Hospitalization)
  Sender: MYLAN
  Company Number: RO-MYLANLABS-2025M1038377

PATIENT
  Age: 69 Year
  Sex: Male

DRUGS (40)
  1. VANCOMYCIN [Suspect]
     Active Substance: VANCOMYCIN
     Indication: Endocarditis
     Dosage: 1 GRAM, BID
  2. VANCOMYCIN [Suspect]
     Active Substance: VANCOMYCIN
     Indication: Enterococcal infection
     Dosage: 1 GRAM, BID
     Route: 065
  3. VANCOMYCIN [Suspect]
     Active Substance: VANCOMYCIN
     Dosage: 1 GRAM, BID
     Route: 065
  4. VANCOMYCIN [Suspect]
     Active Substance: VANCOMYCIN
     Dosage: 1 GRAM, BID
  5. AMPICILLIN [Suspect]
     Active Substance: AMPICILLIN
     Indication: Endocarditis
     Dosage: 3 GRAM, Q6H
  6. AMPICILLIN [Suspect]
     Active Substance: AMPICILLIN
     Indication: Enterococcal infection
     Dosage: 3 GRAM, Q6H
     Route: 065
  7. AMPICILLIN [Suspect]
     Active Substance: AMPICILLIN
     Dosage: 3 GRAM, Q6H
     Route: 065
  8. AMPICILLIN [Suspect]
     Active Substance: AMPICILLIN
     Dosage: 3 GRAM, Q6H
  9. GENTAMICIN [Suspect]
     Active Substance: GENTAMICIN
     Indication: Endocarditis
     Dosage: 240 MILLIGRAM, QD
  10. GENTAMICIN [Suspect]
     Active Substance: GENTAMICIN
     Indication: Enterococcal infection
     Dosage: 240 MILLIGRAM, QD
  11. GENTAMICIN [Suspect]
     Active Substance: GENTAMICIN
     Dosage: 240 MILLIGRAM, QD
     Route: 065
  12. GENTAMICIN [Suspect]
     Active Substance: GENTAMICIN
     Dosage: 240 MILLIGRAM, QD
     Route: 065
  13. GENTAMICIN [Suspect]
     Active Substance: GENTAMICIN
     Dosage: 160 MILLIGRAM, QD
  14. GENTAMICIN [Suspect]
     Active Substance: GENTAMICIN
     Dosage: 160 MILLIGRAM, QD
  15. GENTAMICIN [Suspect]
     Active Substance: GENTAMICIN
     Dosage: 160 MILLIGRAM, QD
     Route: 065
  16. GENTAMICIN [Suspect]
     Active Substance: GENTAMICIN
     Dosage: 160 MILLIGRAM, QD
     Route: 065
  17. IMIPENEM AND CILASTATIN [Suspect]
     Active Substance: CILASTATIN SODIUM\IMIPENEM
     Indication: Endocarditis
     Dosage: 1 GRAM, BID
  18. IMIPENEM AND CILASTATIN [Suspect]
     Active Substance: CILASTATIN SODIUM\IMIPENEM
     Indication: Enterococcal infection
     Dosage: 1 GRAM, BID
     Route: 065
  19. IMIPENEM AND CILASTATIN [Suspect]
     Active Substance: CILASTATIN SODIUM\IMIPENEM
     Dosage: 1 GRAM, BID
     Route: 065
  20. IMIPENEM AND CILASTATIN [Suspect]
     Active Substance: CILASTATIN SODIUM\IMIPENEM
     Dosage: 1 GRAM, BID
  21. AMLODIPINE [Concomitant]
     Active Substance: AMLODIPINE BESYLATE
     Indication: Essential hypertension
  22. AMLODIPINE [Concomitant]
     Active Substance: AMLODIPINE BESYLATE
     Route: 065
  23. AMLODIPINE [Concomitant]
     Active Substance: AMLODIPINE BESYLATE
     Route: 065
  24. AMLODIPINE [Concomitant]
     Active Substance: AMLODIPINE BESYLATE
  25. BISOPROLOL [Concomitant]
     Active Substance: BISOPROLOL
     Indication: Essential hypertension
  26. BISOPROLOL [Concomitant]
     Active Substance: BISOPROLOL
     Route: 065
  27. BISOPROLOL [Concomitant]
     Active Substance: BISOPROLOL
     Route: 065
  28. BISOPROLOL [Concomitant]
     Active Substance: BISOPROLOL
  29. TAMSULOSIN [Concomitant]
     Active Substance: TAMSULOSIN
     Indication: Prostatitis
  30. TAMSULOSIN [Concomitant]
     Active Substance: TAMSULOSIN
     Route: 065
  31. TAMSULOSIN [Concomitant]
     Active Substance: TAMSULOSIN
     Route: 065
  32. TAMSULOSIN [Concomitant]
     Active Substance: TAMSULOSIN
  33. DUTASTERIDE [Concomitant]
     Active Substance: DUTASTERIDE
     Indication: Prostatitis
  34. DUTASTERIDE [Concomitant]
     Active Substance: DUTASTERIDE
     Route: 065
  35. DUTASTERIDE [Concomitant]
     Active Substance: DUTASTERIDE
     Route: 065
  36. DUTASTERIDE [Concomitant]
     Active Substance: DUTASTERIDE
  37. ENTECAVIR [Concomitant]
     Active Substance: ENTECAVIR
     Indication: Chronic hepatitis B
  38. ENTECAVIR [Concomitant]
     Active Substance: ENTECAVIR
     Route: 065
  39. ENTECAVIR [Concomitant]
     Active Substance: ENTECAVIR
     Route: 065
  40. ENTECAVIR [Concomitant]
     Active Substance: ENTECAVIR

REACTIONS (2)
  - Drug resistance [Unknown]
  - Treatment failure [Unknown]
